FAERS Safety Report 22323959 (Version 1)
Quarter: 2023Q2

REPORT INFORMATION
  Report Type: Spontaneous
  Country: PL (occurrence: None)
  Receive Date: 20230516
  Receipt Date: 20230516
  Transmission Date: 20230721
  Serious: Yes (Other)
  Sender: FDA-Public Use
  Company Number: PL-ROCHE-3347762

PATIENT
  Age: 69 Year
  Sex: Male

DRUGS (2)
  1. TECENTRIQ [Suspect]
     Active Substance: ATEZOLIZUMAB
     Indication: Hepatocellular carcinoma
     Route: 065
     Dates: start: 20220524
  2. AVASTIN [Suspect]
     Active Substance: BEVACIZUMAB
     Indication: Hepatocellular carcinoma
     Route: 065
     Dates: start: 20220524

REACTIONS (11)
  - Haemorrhagic diathesis [Unknown]
  - Atrial fibrillation [Unknown]
  - Alpha 1 foetoprotein increased [Unknown]
  - Hypertension [Unknown]
  - Proteinuria [Unknown]
  - Arterial thrombosis [Unknown]
  - Venous thrombosis [Unknown]
  - Impaired healing [Unknown]
  - Fistula [Unknown]
  - Cardiac failure congestive [Unknown]
  - Perforation [Unknown]

NARRATIVE: CASE EVENT DATE: 20230406
